FAERS Safety Report 5513892-X (Version None)
Quarter: 2007Q4

REPORT INFORMATION
  Report Type: 
  Country: None (occurrence: None)
  Receive Date: 20071109
  Receipt Date: 20071109
  Transmission Date: 20080405
  Serious: Yes (Life-Threatening, Hospitalization, Disabling)
  Sender: FDA-Public Use
  Company Number: None

PATIENT
  Age: 18 Year
  Sex: Male
  Weight: 96.9 kg

DRUGS (2)
  1. METHOTREXATE [Suspect]
     Indication: BONE SARCOMA
     Dosage: 20MG X1 IV DRIP
     Route: 041
     Dates: start: 20071015, end: 20071026
  2. METHOTREXATE [Suspect]
     Dates: start: 20070801, end: 20071027

REACTIONS (1)
  - BLOOD CREATININE INCREASED [None]
